FAERS Safety Report 12675509 (Version 3)
Quarter: 2017Q1

REPORT INFORMATION
  Report Type: Spontaneous
  Country: JP (occurrence: JP)
  Receive Date: 20160823
  Receipt Date: 20170227
  Transmission Date: 20170428
  Serious: Yes (Hospitalization, Other)
  Sender: FDA-Public Use
  Company Number: JP-BRISTOL-MYERS SQUIBB COMPANY-BMS-2016-068863

PATIENT
  Age: 72 Year
  Sex: Female
  Weight: 34.7 kg

DRUGS (1)
  1. BARACLUDE [Suspect]
     Active Substance: ENTECAVIR
     Indication: CHRONIC HEPATITIS B
     Dosage: 0.5 MG, QD
     Route: 048
     Dates: start: 20150902

REACTIONS (2)
  - Pancreatic carcinoma [Recovering/Resolving]
  - Pancreatectomy [Unknown]

NARRATIVE: CASE EVENT DATE: 201606
